FAERS Safety Report 10146063 (Version 2)
Quarter: 2014Q2

REPORT INFORMATION
  Report Type: Spontaneous
  Country: US (occurrence: US)
  Receive Date: 20140501
  Receipt Date: 20140521
  Transmission Date: 20141212
  Serious: No
  Sender: FDA-Public Use
  Company Number: US-BAYER-2014-063933

PATIENT
  Age: 54 Year
  Sex: Female

DRUGS (3)
  1. MAGNEVIST [Suspect]
     Indication: CHOLANGIOGRAM
     Dosage: 20 ML, ONCE
     Dates: start: 20140416
  2. MAGNEVIST [Suspect]
     Indication: ABDOMINAL PAIN
  3. MAGNEVIST [Suspect]
     Indication: CHOLELITHIASIS

REACTIONS (1)
  - Pruritus [Recovered/Resolved]
